FAERS Safety Report 23975604 (Version 1)
Quarter: 2024Q2

REPORT INFORMATION
  Report Type: Report from Study
  Country: DE (occurrence: DE)
  Receive Date: 20240614
  Receipt Date: 20240614
  Transmission Date: 20240715
  Serious: Yes (Death)
  Sender: FDA-Public Use
  Company Number: DE-SERVIER-S24007420

PATIENT

DRUGS (10)
  1. TIBSOVO [Suspect]
     Active Substance: IVOSIDENIB
     Indication: Acute myeloid leukaemia refractory
     Dosage: 500 MG, QD
     Route: 048
     Dates: start: 20240517, end: 20240605
  2. MOLIDUSTAT [Suspect]
     Active Substance: MOLIDUSTAT
     Indication: Acute myeloid leukaemia refractory
     Dosage: 75 MG, BID
     Route: 048
     Dates: start: 20240517, end: 20240605
  3. HYDROXYUREA [Concomitant]
     Active Substance: HYDROXYUREA
     Indication: Leukocytosis
     Dosage: 500 MG, QID
     Route: 048
     Dates: start: 20240506, end: 20240508
  4. HYDROXYUREA [Concomitant]
     Active Substance: HYDROXYUREA
     Dosage: 500 MG, BID
     Route: 048
     Dates: start: 20240509, end: 20240510
  5. HYDROXYUREA [Concomitant]
     Active Substance: HYDROXYUREA
     Dosage: 1500 MG, QD
     Route: 048
     Dates: start: 20240515, end: 20240519
  6. HYDROXYUREA [Concomitant]
     Active Substance: HYDROXYUREA
     Dosage: 500 MG, QD
     Route: 048
     Dates: start: 20240520, end: 20240520
  7. HYDROXYUREA [Concomitant]
     Active Substance: HYDROXYUREA
     Dosage: 500 MG, BID
     Route: 048
     Dates: start: 20240524, end: 20240525
  8. LASIX [Concomitant]
     Active Substance: FUROSEMIDE
     Indication: Product used for unknown indication
     Dosage: 20 MG, QD
     Route: 042
     Dates: start: 20240520, end: 20240520
  9. LASIX [Concomitant]
     Active Substance: FUROSEMIDE
     Dosage: 0.5 ML/H
     Route: 065
     Dates: start: 20240527, end: 20240531
  10. LASIX [Concomitant]
     Active Substance: FUROSEMIDE
     Dosage: 0.15 ML/H
     Route: 065
     Dates: start: 20240603, end: 20240606

REACTIONS (1)
  - Differentiation syndrome [Fatal]

NARRATIVE: CASE EVENT DATE: 20240605
